FAERS Safety Report 16500157 (Version 4)
Quarter: 2024Q3

REPORT INFORMATION
  Report Type: Report from Study
  Country: JP (occurrence: JP)
  Receive Date: 20190701
  Receipt Date: 20240729
  Transmission Date: 20241016
  Serious: Yes (Death, Other)
  Sender: NOVARTIS
  Company Number: PHJP2019JP006683

PATIENT
  Age: 78 Year
  Sex: Male

DRUGS (6)
  1. TAFINLAR [Suspect]
     Active Substance: DABRAFENIB MESYLATE
     Indication: Malignant melanoma stage IV
     Dosage: 300 MG, UNK
     Route: 048
     Dates: start: 20180109, end: 20180529
  2. TAFINLAR [Suspect]
     Active Substance: DABRAFENIB MESYLATE
     Dosage: 200 MG, UNK
     Route: 048
     Dates: start: 20180619, end: 20180625
  3. TAFINLAR [Suspect]
     Active Substance: DABRAFENIB MESYLATE
     Dosage: 150 MG, UNK
     Route: 048
     Dates: start: 20180626
  4. MEKINIST [Suspect]
     Active Substance: TRAMETINIB DIMETHYL SULFOXIDE
     Indication: Malignant melanoma stage IV
     Dosage: 2 MG, UNK
     Route: 048
     Dates: start: 20180109, end: 20180529
  5. MEKINIST [Suspect]
     Active Substance: TRAMETINIB DIMETHYL SULFOXIDE
     Dosage: 1.5 MG, UNK
     Route: 048
     Dates: start: 20180619, end: 20180625
  6. MEKINIST [Suspect]
     Active Substance: TRAMETINIB DIMETHYL SULFOXIDE
     Dosage: 1 MG, UNK
     Route: 048
     Dates: start: 20180626

REACTIONS (7)
  - Death [Fatal]
  - Neutrophil count decreased [Recovered/Resolved]
  - Malignant melanoma stage IV [Recovering/Resolving]
  - Malignant neoplasm progression [Recovering/Resolving]
  - Pain [Recovering/Resolving]
  - Metastases to bone [Recovering/Resolving]
  - Blood lactate dehydrogenase increased [Not Recovered/Not Resolved]

NARRATIVE: CASE EVENT DATE: 20180123
